FAERS Safety Report 8519098 (Version 2)
Quarter: 2013Q2

REPORT INFORMATION
  Report Type: Spontaneous
  Country: US (occurrence: None)
  Receive Date: 20120104
  Receipt Date: 20120508
  Transmission Date: 20140414
  Serious: Yes (Other)
  Sender: FDA-Public Use
  Company Number: 2011HGS-002646

PATIENT
  Age: 48 Year
  Sex: Female
  Weight: 110.68 kg

DRUGS (14)
  1. BENLYSTA [Suspect]
     Indication: SYSTEMIC LUPUS ERYTHEMATOSUS
     Dosage: 10MG/KG1 IN 2 WK, INTRAVENOUS DRIP
     Route: 041
     Dates: start: 20110909
  2. SYNTHROID [Suspect]
  3. TRILIPIX [Suspect]
  4. FISH OIL (FISH OIL) (FISH OIL) [Concomitant]
  5. DICLOFENAC [Concomitant]
  6. VITAMIN D (ERGOCALCIFEROL) [Concomitant]
  7. ONDANSETRON (ONDANSETRON) [Concomitant]
  8. VOLTAREN [Concomitant]
  9. IMURAN [Concomitant]
  10. DEXILANT [Concomitant]
  11. PLAQUENIL [Concomitant]
  12. HYDROCODONE (HYDROCODONE) [Concomitant]
  13. VERAMIST (FLUTICASONE FUROATE) [Concomitant]
  14. APRESOLINE(HYDRALAZINE HYDROCHLORIDE)(HYDRALAZINE HYDROCHLORIDE) [Concomitant]

REACTIONS (12)
  - HYPERTENSION [None]
  - THYROID DISORDER [None]
  - BLOOD CHOLESTEROL INCREASED [None]
  - BONE PAIN [None]
  - VOMITING [None]
  - ABDOMINAL DISTENSION [None]
  - FATIGUE [None]
  - WEIGHT INCREASED [None]
  - MIGRAINE WITH AURA [None]
  - URINARY TRACT INFECTION [None]
  - PAIN IN EXTREMITY [None]
  - NAUSEA [None]
